FAERS Safety Report 10424983 (Version 1)
Quarter: 2014Q3

REPORT INFORMATION
  Report Type: Spontaneous
  Country: US (occurrence: None)
  Receive Date: 20140725
  Receipt Date: 20140725
  Transmission Date: 20150326
  Serious: No
  Sender: FDA-Public Use
  Company Number: AP356-00589-SPO-US

PATIENT
  Age: 73 Year
  Sex: Female
  Weight: 141.8 kg

DRUGS (4)
  1. VITAMINS (VIGRAN) [Concomitant]
  2. OMEPRAZOLE. [Concomitant]
     Active Substance: OMEPRAZOLE
  3. BELVIQ [Suspect]
     Active Substance: LORCASERIN HYDROCHLORIDE
     Indication: WEIGHT DECREASED
     Route: 048
     Dates: start: 20140328, end: 201404
  4. CRESTOR [Concomitant]
     Active Substance: ROSUVASTATIN CALCIUM

REACTIONS (3)
  - Vertigo [None]
  - Fatigue [None]
  - Limb discomfort [None]

NARRATIVE: CASE EVENT DATE: 201404
